FAERS Safety Report 6645661-1 (Version None)
Quarter: 2010Q1

REPORT INFORMATION
  Report Type: 
  Country: None (occurrence: None)
  Receive Date: 20100323
  Receipt Date: 20100316
  Transmission Date: 20100710
  Serious: Yes (Other)
  Sender: FDA-Public Use
  Company Number: IE-B.I. PHARMACEUTICALS,INC./RIDGEFIELD-2010-UK-00130UK

PATIENT
  Age: 75 Year
  Sex: Male

DRUGS (14)
  1. SPIRIVA [Suspect]
     Indication: CHRONIC RESPIRATORY DISEASE
     Dosage: 18 MCG
     Route: 055
     Dates: start: 20100123, end: 20100124
  2. NU-SEALS [Concomitant]
  3. GLYTRIN [Concomitant]
  4. NEBILET [Concomitant]
  5. FRUSEMIDE [Concomitant]
  6. LIPITOR [Concomitant]
  7. DILZEM XL [Concomitant]
  8. PLAVIX [Concomitant]
  9. ATACAND [Concomitant]
  10. NEXIUM [Concomitant]
  11. PROCORALAN [Concomitant]
  12. SERETIDE [Concomitant]
     Dosage: 250 EVOHALER. 25/250MCG/DOSE PRESSURE
  13. EFFEXOR [Concomitant]
  14. ATROVENT [Concomitant]
     Dosage: INHALER CFC FREE

REACTIONS (1)
  - DIPLOPIA [None]
